FAERS Safety Report 4421944-0 (Version None)
Quarter: 2004Q3

REPORT INFORMATION
  Report Type: 
  Country: None (occurrence: None)
  Receive Date: 20040804
  Receipt Date: 20040721
  Transmission Date: 20050211
  Serious: Yes (Hospitalization)
  Sender: FDA-Public Use
  Company Number: 04P-163-0267709-00

PATIENT
  Age: 26 Year
  Sex: Male
  Weight: 48.9885 kg

DRUGS (1)
  1. HUMIRA [Suspect]
     Indication: CROHN'S DISEASE
     Dosage: 80 MG, 1 IN 2 WK, SUBCUTANEOUS
     Route: 058
     Dates: start: 20040701

REACTIONS (3)
  - ARTHRALGIA [None]
  - CROHN'S DISEASE [None]
  - PYREXIA [None]
